FAERS Safety Report 13077715 (Version 1)
Quarter: 2017Q1

REPORT INFORMATION
  Report Type: Spontaneous
  Country: US (occurrence: US)
  Receive Date: 20170101
  Receipt Date: 20170101
  Transmission Date: 20170428
  Serious: No
  Sender: FDA-Public Use
  Company Number: US-ASTRAZENECA-2016SF36721

PATIENT
  Age: 25679 Day
  Sex: Female
  Weight: 88.5 kg

DRUGS (2)
  1. NEXIUM 24HR [Suspect]
     Active Substance: ESOMEPRAZOLE MAGNESIUM
     Dosage: UNKNOWN
     Route: 048
  2. NEXIUM [Suspect]
     Active Substance: ESOMEPRAZOLE MAGNESIUM
     Indication: GASTROOESOPHAGEAL REFLUX DISEASE
     Route: 048

REACTIONS (8)
  - Adverse reaction [Unknown]
  - Gastrooesophageal reflux disease [Unknown]
  - Sleep disorder due to a general medical condition [Unknown]
  - Burning sensation [Unknown]
  - Dyspnoea [Unknown]
  - Intentional product misuse [Unknown]
  - Drug ineffective [Unknown]
  - Oropharyngeal pain [Unknown]

NARRATIVE: CASE EVENT DATE: 20161221
